FAERS Safety Report 15764233 (Version 1)
Quarter: 2018Q4

REPORT INFORMATION
  Report Type: Spontaneous
  Country: US (occurrence: US)
  Receive Date: 20181227
  Receipt Date: 20181227
  Transmission Date: 20190205
  Serious: No
  Sender: FDA-Public Use
  Company Number: US-BAUSCH-BL-2018-035253

PATIENT
  Sex: Female

DRUGS (2)
  1. DIASTAT [Suspect]
     Active Substance: DIAZEPAM
     Indication: SEIZURE
     Dosage: SOMETIME IN 2012
     Route: 054
     Dates: start: 2012
  2. DIASTAT [Suspect]
     Active Substance: DIAZEPAM
     Route: 054

REACTIONS (1)
  - Drug effect delayed [Unknown]
